FAERS Safety Report 21209028 (Version 2)
Quarter: 2022Q3

REPORT INFORMATION
  Report Type: Spontaneous
  Country: US (occurrence: US)
  Receive Date: 20220812
  Receipt Date: 20220902
  Transmission Date: 20221027
  Serious: No
  Sender: FDA-Public Use
  Company Number: US-IDORSIA-000913-2022-US

PATIENT
  Age: 55 Year
  Sex: Female

DRUGS (3)
  1. QUVIVIQ [Suspect]
     Active Substance: DARIDOREXANT
     Indication: Insomnia
     Dosage: 50 MG, QD
     Route: 048
     Dates: start: 20220627, end: 20220629
  2. XANAX [Concomitant]
     Active Substance: ALPRAZOLAM
     Dosage: UNK, AT BEDTIME
  3. INSULIN NOS [Concomitant]
     Active Substance: INSULIN NOS
     Indication: Hypoglycaemia

REACTIONS (2)
  - Nervousness [Recovered/Resolved]
  - Feeling abnormal [Recovered/Resolved]

NARRATIVE: CASE EVENT DATE: 20220627
